FAERS Safety Report 5229583-9 (Version None)
Quarter: 2007Q1

REPORT INFORMATION
  Report Type: 
  Country: None (occurrence: None)
  Receive Date: 20070205
  Receipt Date: 20070124
  Transmission Date: 20070707
  Serious: Yes (Hospitalization)
  Sender: FDA-Public Use
  Company Number: PFIZER INC-2007006048

PATIENT
  Age: 51 Year
  Sex: Male
  Weight: 73 kg

DRUGS (2)
  1. SORAFENIB [Suspect]
     Indication: RENAL CELL CARCINOMA STAGE UNSPECIFIED
     Route: 048
  2. SUNITINIB [Suspect]
     Dosage: FREQ:BID X 6 WEEKS FOR 9 CYCLES
     Route: 048

REACTIONS (3)
  - HYPERKALAEMIA [None]
  - HYPOXIA [None]
  - PNEUMONIA [None]
